FAERS Safety Report 8222519-8 (Version None)
Quarter: 2012Q1

REPORT INFORMATION
  Report Type: 
  Country: None (occurrence: None)
  Receive Date: 20120320
  Receipt Date: 20120313
  Transmission Date: 20120608
  Serious: Yes (Other)
  Sender: FDA-Public Use
  Company Number: US-TEVA-327867USA

PATIENT
  Sex: Male

DRUGS (1)
  1. ENALAPRIL [Suspect]

REACTIONS (4)
  - DIZZINESS [None]
  - EAR DISCOMFORT [None]
  - LOSS OF CONSCIOUSNESS [None]
  - HEADACHE [None]
